FAERS Safety Report 9753530 (Version 1)
Quarter: 2013Q4

REPORT INFORMATION
  Report Type: Spontaneous
  Country: YU (occurrence: YU)
  Receive Date: 20131213
  Receipt Date: 20131213
  Transmission Date: 20140711
  Serious: Yes (Death)
  Sender: FDA-Public Use
  Company Number: YU-PFIZER INC-2013354316

PATIENT
  Age: 70 Year
  Sex: 0

DRUGS (2)
  1. TRITACE [Suspect]
     Indication: HYPERTENSION
     Dosage: 2.5 MG, UNK
     Route: 048
  2. TAMSULOSIN [Concomitant]
     Dosage: UNK

REACTIONS (1)
  - Completed suicide [Fatal]
